FAERS Safety Report 10972812 (Version 2)
Quarter: 2015Q2

REPORT INFORMATION
  Report Type: Spontaneous
  Country: US (occurrence: US)
  Receive Date: 20150331
  Receipt Date: 20150525
  Transmission Date: 20150821
  Serious: No
  Sender: FDA-Public Use
  Company Number: US-JNJFOC-20121203870

PATIENT
  Age: 26 Year
  Sex: Male
  Weight: 83.01 kg

DRUGS (6)
  1. HALOPERIDOL. [Concomitant]
     Active Substance: HALOPERIDOL
     Indication: PRODUCT USED FOR UNKNOWN INDICATION
     Route: 065
  2. BENZTROPINE [Concomitant]
     Active Substance: BENZTROPINE
     Indication: PRODUCT USED FOR UNKNOWN INDICATION
     Dosage: AS NEEDED
     Route: 065
  3. RISPERDAL CONSTA [Suspect]
     Active Substance: RISPERIDONE
     Indication: SCHIZOAFFECTIVE DISORDER
     Dosage: 75MG/LONG ACTING INJECTION/50MG AND??1/2 OF A 50MG INJECTION/EVERY 2??WEEKS/
     Route: 030
     Dates: start: 20121119
  4. RISPERDAL CONSTA [Suspect]
     Active Substance: RISPERIDONE
     Indication: SCHIZOAFFECTIVE DISORDER
     Dosage: 62.5MG/LONG ACTING/50MG AND 12.5??MG DOSE/EVERY 2 WEEKS/INTRAMUSCULAR
     Route: 030
     Dates: start: 20120823, end: 201211
  5. VISTARIL [Concomitant]
     Active Substance: HYDROXYZINE PAMOATE
     Indication: PRODUCT USED FOR UNKNOWN INDICATION
     Route: 065
  6. RISPERDAL CONSTA [Suspect]
     Active Substance: RISPERIDONE
     Indication: SCHIZOAFFECTIVE DISORDER
     Dosage: 50 MG/2ML-3ML/14 DAYS
     Route: 030
     Dates: start: 20120717, end: 20121205

REACTIONS (5)
  - Prescribed overdose [Unknown]
  - Underdose [Not Recovered/Not Resolved]
  - Drug effect decreased [Unknown]
  - Device malfunction [Unknown]
  - Device leakage [Unknown]

NARRATIVE: CASE EVENT DATE: 2012
